FAERS Safety Report 25497120 (Version 1)
Quarter: 2025Q3

REPORT INFORMATION
  Report Type: Spontaneous
  Country: US (occurrence: US)
  Receive Date: 20250701
  Receipt Date: 20250701
  Transmission Date: 20251021
  Serious: Yes (Other)
  Sender: AMGEN
  Company Number: US-KYOWAKIRIN-2025KK011963

PATIENT
  Age: 69 Year
  Sex: Male

DRUGS (2)
  1. FILGRASTIM [Suspect]
     Active Substance: FILGRASTIM
     Indication: Autologous haematopoietic stem cell transplant
     Route: 065
  2. PEGFILGRASTIM [Suspect]
     Active Substance: PEGFILGRASTIM
     Indication: Autologous haematopoietic stem cell transplant
     Route: 065

REACTIONS (2)
  - Acute kidney injury [Unknown]
  - Glomerulonephritis acute [Unknown]
